FAERS Safety Report 11240197 (Version 1)
Quarter: 2015Q3

REPORT INFORMATION
  Report Type: Spontaneous
  Country: US (occurrence: US)
  Receive Date: 20150706
  Receipt Date: 20150706
  Transmission Date: 20151125
  Serious: Yes (Other)
  Sender: FDA-Public Use
  Company Number: US-GLAXOSMITHKLINE-US2015092154

PATIENT
  Sex: Female

DRUGS (1)
  1. FLONASE ALLERGY RELIEF [Suspect]
     Active Substance: FLUTICASONE PROPIONATE
     Indication: HYPERSENSITIVITY
     Dosage: UNK

REACTIONS (6)
  - Adverse drug reaction [Unknown]
  - Adrenal insufficiency [Unknown]
  - Epistaxis [Unknown]
  - Visual impairment [Unknown]
  - Insomnia [Unknown]
  - Cataract [Unknown]
